FAERS Safety Report 14242859 (Version 2)
Quarter: 2018Q2

REPORT INFORMATION
  Report Type: Spontaneous
  Country: GE (occurrence: GE)
  Receive Date: 20171201
  Receipt Date: 20180409
  Transmission Date: 20180711
  Serious: Yes (Hospitalization)
  Sender: FDA-Public Use
  Company Number: GE-JNJFOC-20171133447

PATIENT
  Age: 57 Year
  Sex: Male
  Weight: 55 kg

DRUGS (12)
  1. CLOFAZIMINE [Suspect]
     Active Substance: CLOFAZIMINE
     Indication: TUBERCULOSIS
     Route: 065
     Dates: start: 20160614
  2. PROTHIONAMIDE [Suspect]
     Active Substance: PROTIONAMIDE
     Indication: TUBERCULOSIS
     Route: 065
     Dates: start: 20160614, end: 20170102
  3. PARA-AMINOSALICYLIC ACID [Suspect]
     Active Substance: AMINOSALICYLIC ACID
     Indication: TUBERCULOSIS
     Route: 048
     Dates: start: 20170102
  4. LINEZOLID. [Suspect]
     Active Substance: LINEZOLID
     Indication: TUBERCULOSIS
     Route: 048
     Dates: start: 20160614
  5. CLOFAZIMINE [Suspect]
     Active Substance: CLOFAZIMINE
     Indication: TUBERCULOSIS
     Route: 065
     Dates: start: 20160722, end: 20160902
  6. BEDAQUILINE [Suspect]
     Active Substance: BEDAQUILINE
     Indication: TUBERCULOSIS
     Route: 048
     Dates: start: 20160628, end: 20161201
  7. CYCLOSERINE. [Suspect]
     Active Substance: CYCLOSERINE
     Indication: TUBERCULOSIS
     Route: 048
     Dates: start: 20170106, end: 20170407
  8. BEDAQUILINE [Suspect]
     Active Substance: BEDAQUILINE
     Indication: TUBERCULOSIS
     Route: 048
     Dates: start: 20160614
  9. ETHAMBUTOL [Suspect]
     Active Substance: ETHAMBUTOL HYDROCHLORIDE
     Indication: TUBERCULOSIS
     Route: 065
     Dates: start: 20160614, end: 20161223
  10. LINEZOLID. [Suspect]
     Active Substance: LINEZOLID
     Indication: TUBERCULOSIS
     Route: 065
     Dates: start: 20160614
  11. CLOFAZIMINE [Suspect]
     Active Substance: CLOFAZIMINE
     Indication: TUBERCULOSIS
     Route: 065
     Dates: start: 20161004
  12. PYRAZINAMIDE. [Suspect]
     Active Substance: PYRAZINAMIDE
     Indication: TUBERCULOSIS
     Route: 065
     Dates: start: 20160614, end: 20161223

REACTIONS (1)
  - Psychotic disorder [Recovered/Resolved]

NARRATIVE: CASE EVENT DATE: 20170407
